FAERS Safety Report 12410128 (Version 2)
Quarter: 2016Q3

REPORT INFORMATION
  Report Type: Report from Study
  Country: JP (occurrence: JP)
  Receive Date: 20160527
  Receipt Date: 20160708
  Transmission Date: 20161109
  Serious: Yes (Hospitalization)
  Sender: FDA-Public Use
  Company Number: JP-ROCHE-1748500

PATIENT
  Age: 74 Year
  Sex: Female
  Weight: 44 kg

DRUGS (8)
  1. PARIET [Concomitant]
     Active Substance: RABEPRAZOLE SODIUM
     Indication: PROPHYLAXIS
     Dosage: THE FRACTIONATION DOSE FREQUENCY IS UNCERTAIN.
     Route: 048
     Dates: start: 20160422, end: 20160513
  2. LANTUS [Concomitant]
     Active Substance: INSULIN GLARGINE
     Dosage: THE FRACTIONATION DOSE FREQUENCY IS UNCERTAIN.
     Route: 058
     Dates: start: 20160502
  3. HUMULIN R [Concomitant]
     Active Substance: INSULIN HUMAN
     Dosage: THE ADMINISTERING DOSAGE IS UNCERTAIN IN THE SLIDING SCALE. ?THE FRACTIONATION DOSE FREQUENCY IS UN
     Route: 058
     Dates: start: 20160423, end: 20160427
  4. NOVORAPID [Concomitant]
     Active Substance: INSULIN ASPART
     Dosage: THE FRACTIONATION DOSE FREQUENCY IS UNCERTAIN.
     Route: 058
     Dates: start: 20160428
  5. TENELIA [Concomitant]
     Active Substance: TENELIGLIPTIN
     Dosage: THE FRACTIONATION DOSE FREQUENCY IS UNCERTAIN.
     Route: 048
     Dates: end: 20160427
  6. LANTUS [Concomitant]
     Active Substance: INSULIN GLARGINE
     Dosage: THE FRACTIONATION DOSE FREQUENCY IS UNCERTAIN.
     Route: 058
     Dates: start: 20160428, end: 20160501
  7. BAYASPIRIN [Concomitant]
     Active Substance: ASPIRIN
     Indication: PROPHYLAXIS
     Dosage: THE FRACTIONATION DOSE FREQUENCY IS UNCERTAIN.
     Route: 048
     Dates: start: 20160422, end: 20160511
  8. VEMURAFENIB [Suspect]
     Active Substance: VEMURAFENIB
     Indication: MALIGNANT MELANOMA
     Dosage: MOST RECENT DOSE:19/APR/2016
     Route: 048
     Dates: start: 20160316, end: 20160419

REACTIONS (6)
  - Myocarditis [Recovered/Resolved]
  - Pneumonia [Recovered/Resolved]
  - Pleural effusion [Recovered/Resolved]
  - Diastolic dysfunction [Recovered/Resolved]
  - Pulmonary oedema [Recovered/Resolved]
  - Cardiac failure [Recovered/Resolved]

NARRATIVE: CASE EVENT DATE: 20160418
